FAERS Safety Report 23914252 (Version 3)
Quarter: 2024Q3

REPORT INFORMATION
  Report Type: Spontaneous
  Country: CA (occurrence: CA)
  Receive Date: 20240529
  Receipt Date: 20240704
  Transmission Date: 20241017
  Serious: Yes (Other)
  Sender: PFIZER
  Company Number: CA-PFIZER INC-202400179473

PATIENT
  Age: 71 Year
  Sex: Female

DRUGS (2)
  1. RUXIENCE [Suspect]
     Active Substance: RITUXIMAB-PVVR
     Indication: Granulomatosis with polyangiitis
     Dosage: 1000 MG, EVERY 4 WEEK
     Route: 042
     Dates: start: 20240216
  2. PREDNISONE [Concomitant]
     Active Substance: PREDNISONE
     Dosage: 3 MG, DAILY (DIE)

REACTIONS (2)
  - Bladder operation [Unknown]
  - Off label use [Unknown]

NARRATIVE: CASE EVENT DATE: 20240216
